FAERS Safety Report 6718035-2 (Version None)
Quarter: 2010Q2

REPORT INFORMATION
  Report Type: 
  Country: None (occurrence: None)
  Receive Date: 20100510
  Receipt Date: 20100428
  Transmission Date: 20101027
  Serious: Yes (Hospitalization)
  Sender: FDA-Public Use
  Company Number: PHHY2010FR27567

PATIENT
  Sex: Female

DRUGS (2)
  1. RITALIN [Suspect]
     Indication: ATTENTION DEFICIT/HYPERACTIVITY DISORDER
     Dosage: 10 MG, QD
     Dates: start: 20090301, end: 20100128
  2. FLU VACCINE [Concomitant]
     Dates: start: 20091201, end: 20091201

REACTIONS (3)
  - DYSTONIA [None]
  - MUSCLE TWITCHING [None]
  - MYOCLONUS [None]
